FAERS Safety Report 7908402-3 (Version None)
Quarter: 2011Q4

REPORT INFORMATION
  Report Type: 
  Country: None (occurrence: None)
  Receive Date: 20111111
  Receipt Date: 20111101
  Transmission Date: 20120403
  Serious: No
  Sender: FDA-Public Use
  Company Number: US-JNJFOC-20111101198

PATIENT
  Sex: Female
  Weight: 63.5 kg

DRUGS (5)
  1. RISPERDAL [Concomitant]
     Route: 065
  2. DURAGESIC-100 [Suspect]
     Indication: PAIN
     Route: 062
     Dates: start: 20111101
  3. ADVAIR DISKUS 100/50 [Concomitant]
     Route: 065
  4. PROZAC [Concomitant]
     Route: 065
  5. LITHIUM [Concomitant]
     Route: 065

REACTIONS (1)
  - DRUG ADMINISTERED AT INAPPROPRIATE SITE [None]
